FAERS Safety Report 25249909 (Version 1)
Quarter: 2025Q2

REPORT INFORMATION
  Report Type: Spontaneous
  Country: US (occurrence: US)
  Receive Date: 20250429
  Receipt Date: 20250429
  Transmission Date: 20250716
  Serious: No
  Sender: ABBVIE
  Company Number: US-ABBVIE-6243667

PATIENT
  Age: 24 Year
  Sex: Female

DRUGS (1)
  1. VRAYLAR [Suspect]
     Active Substance: CARIPRAZINE
     Indication: Bipolar disorder
     Route: 048
     Dates: start: 20250410, end: 20250414

REACTIONS (5)
  - Rash [Unknown]
  - Abnormal dreams [Unknown]
  - Vomiting [Unknown]
  - Nausea [Unknown]
  - Nightmare [Unknown]

NARRATIVE: CASE EVENT DATE: 20250401
